FAERS Safety Report 9490420 (Version 1)
Quarter: 2013Q3

REPORT INFORMATION
  Report Type: Spontaneous
  Country: US (occurrence: None)
  Receive Date: 20130827
  Receipt Date: 20130827
  Transmission Date: 20140515
  Serious: Yes (Disabling)
  Sender: FDA-Public Use
  Company Number: None

PATIENT
  Age: 59 None
  Sex: Male
  Weight: 102.06 kg

DRUGS (1)
  1. LEVOFLOXACIN [Suspect]
     Indication: SINUSITIS
     Dosage: 1 PILL  QD (1XDAY) BY MOUTH
     Route: 048
     Dates: start: 20130610, end: 20130620

REACTIONS (2)
  - Tendon rupture [None]
  - Rotator cuff syndrome [None]
